FAERS Safety Report 16803592 (Version 1)
Quarter: 2019Q3

REPORT INFORMATION
  Report Type: Spontaneous
  Country: CN (occurrence: CN)
  Receive Date: 20190913
  Receipt Date: 20190913
  Transmission Date: 20191005
  Serious: Yes (Death, Life-Threatening, Other)
  Sender: FDA-Public Use
  Company Number: CN-009507513-1909CHN003266

PATIENT
  Age: 80 Year
  Sex: Male
  Weight: 60 kg

DRUGS (4)
  1. DESLANOSIDE [Concomitant]
     Active Substance: DESLANOSIDE
     Dosage: UNK
     Dates: start: 201908
  2. NESIRITIDE [Concomitant]
     Active Substance: NESIRITIDE
     Dosage: UNK
     Dates: start: 201908
  3. TIENAM [Suspect]
     Active Substance: CILASTATIN SODIUM\IMIPENEM
     Dosage: 0.5 GRAM, Q6H
     Route: 042
     Dates: start: 20190805, end: 20190811
  4. TIENAM [Suspect]
     Active Substance: CILASTATIN SODIUM\IMIPENEM
     Indication: LUNG INFECTION
     Dosage: 1 GRAM, Q8H
     Route: 042
     Dates: start: 20190802, end: 20190805

REACTIONS (18)
  - Cardiac failure [Unknown]
  - Renal failure [Unknown]
  - Seizure [Recovered/Resolved]
  - Seizure [Not Recovered/Not Resolved]
  - Cerebral small vessel ischaemic disease [Unknown]
  - Respiratory failure [Fatal]
  - Muscle tightness [Recovered/Resolved]
  - Muscle rigidity [Unknown]
  - Confusional state [Unknown]
  - Lacunar infarction [Unknown]
  - Intracranial infection [Unknown]
  - Cardiogenic shock [Fatal]
  - Encephalomalacia [Unknown]
  - Neurodegenerative disorder [Unknown]
  - Cardiac arrest [Fatal]
  - Pneumonia [Fatal]
  - Seizure [Recovered/Resolved]
  - Musculoskeletal stiffness [Unknown]

NARRATIVE: CASE EVENT DATE: 201908
